FAERS Safety Report 7420878-7 (Version None)
Quarter: 2011Q2

REPORT INFORMATION
  Report Type: 
  Country: None (occurrence: None)
  Receive Date: 20110418
  Receipt Date: 20110412
  Transmission Date: 20111010
  Serious: Yes (Hospitalization)
  Sender: FDA-Public Use
  Company Number: A0889222A

PATIENT
  Age: 59 Year
  Sex: Male
  Weight: 147.7 kg

DRUGS (9)
  1. ALTACE [Concomitant]
  2. HYDROCHLOROTHIAZIDE [Concomitant]
  3. COMBIVENT [Concomitant]
  4. AVANDIA [Suspect]
     Dosage: 8MG PER DAY
     Route: 048
     Dates: start: 20010101, end: 20060101
  5. LIPITOR [Concomitant]
  6. TOPROL-XL [Concomitant]
  7. GLYBURIDE [Concomitant]
  8. GLUCOVANCE [Concomitant]
  9. RHINOCORT [Concomitant]

REACTIONS (3)
  - CARDIOVASCULAR DISORDER [None]
  - CORONARY ARTERY DISEASE [None]
  - ANGINA UNSTABLE [None]
